FAERS Safety Report 24409402 (Version 1)
Quarter: 2024Q4

REPORT INFORMATION
  Report Type: Spontaneous
  Country: IE (occurrence: IE)
  Receive Date: 20241008
  Receipt Date: 20241008
  Transmission Date: 20250115
  Serious: Yes (Hospitalization)
  Sender: NOVO NORDISK
  Company Number: None

PATIENT
  Age: 28 Year
  Sex: Female

DRUGS (1)
  1. OZEMPIC [Suspect]
     Active Substance: SEMAGLUTIDE
     Indication: Weight control
     Dosage: 1 MG
     Route: 058
     Dates: start: 20240830, end: 20240830

REACTIONS (8)
  - Acute kidney injury [Recovered/Resolved]
  - Product use issue [Recovered/Resolved]
  - Vomiting [Recovered/Resolved]
  - Hypophosphataemia [Recovered/Resolved]
  - Prescription drug used without a prescription [Recovered/Resolved]
  - Hypokalaemia [Recovered/Resolved]
  - Product administered from unauthorised provider [Recovered/Resolved]
  - Hypovolaemia [Recovered/Resolved]

NARRATIVE: CASE EVENT DATE: 20240830
